FAERS Safety Report 12827816 (Version 1)
Quarter: 2016Q4

REPORT INFORMATION
  Report Type: Spontaneous
  Country: US (occurrence: US)
  Receive Date: 20161006
  Receipt Date: 20161006
  Transmission Date: 20170207
  Serious: No
  Sender: FDA-Public Use
  Company Number: US-CELGENEUS-USA-2016100250

PATIENT
  Sex: Female

DRUGS (1)
  1. REVLIMID [Suspect]
     Active Substance: LENALIDOMIDE
     Indication: BONE MARROW DISORDER
     Dosage: 25 MILLIGRAM
     Route: 048
     Dates: start: 20160416

REACTIONS (2)
  - Oedema peripheral [Unknown]
  - Bone marrow oedema [Unknown]
